FAERS Safety Report 20557192 (Version 2)
Quarter: 2022Q2

REPORT INFORMATION
  Report Type: Spontaneous
  Country: US (occurrence: US)
  Receive Date: 20220307
  Receipt Date: 20220418
  Transmission Date: 20220721
  Serious: No
  Sender: FDA-Public Use
  Company Number: US-PFIZER INC-202200205322

PATIENT
  Age: 7 Year
  Sex: Female
  Weight: 19.96 kg

DRUGS (1)
  1. GENOTROPIN [Suspect]
     Active Substance: SOMATROPIN
     Indication: Growth hormone deficiency
     Dosage: 0.8 MG ONCE A DAY BY INJECTION

REACTIONS (4)
  - Device malfunction [Not Recovered/Not Resolved]
  - Device breakage [Not Recovered/Not Resolved]
  - Drug dose omission by device [Not Recovered/Not Resolved]
  - Expired device used [Not Recovered/Not Resolved]

NARRATIVE: CASE EVENT DATE: 20220101
